FAERS Safety Report 24291401 (Version 1)
Quarter: 2024Q3

REPORT INFORMATION
  Report Type: Spontaneous
  Country: US (occurrence: None)
  Receive Date: 20240906
  Receipt Date: 20240906
  Transmission Date: 20241017
  Serious: No
  Sender: DOMPE FARMACEUTICI
  Company Number: US-FARMAPROD-202308-2497

PATIENT
  Age: 49 Year
  Sex: Female
  Weight: 60.46 kg

DRUGS (22)
  1. OXERVATE [Suspect]
     Active Substance: CENEGERMIN-BKBJ
     Indication: Neurotrophic keratopathy
     Route: 047
     Dates: start: 20220811, end: 20221025
  2. OXERVATE [Suspect]
     Active Substance: CENEGERMIN-BKBJ
     Route: 047
     Dates: start: 20230814
  3. OXYGEN [Concomitant]
     Active Substance: OXYGEN
  4. FLUTICASONE PROPIONATE [Concomitant]
     Active Substance: FLUTICASONE PROPIONATE
  5. RESTASIS [Concomitant]
     Active Substance: CYCLOSPORINE
  6. LORAZEPAM [Concomitant]
     Active Substance: LORAZEPAM
  7. INSULIN LISPRO [Concomitant]
     Active Substance: INSULIN LISPRO
     Dosage: 100/ML VIAL
  8. NIFEDIPINE [Concomitant]
     Active Substance: NIFEDIPINE
  9. ASPIRIN [Concomitant]
     Active Substance: ASPIRIN
  10. ATORVASTATIN CALCIUM [Concomitant]
     Active Substance: ATORVASTATIN CALCIUM
  11. OMEPRAZOLE [Concomitant]
     Active Substance: OMEPRAZOLE
  12. CETIRIZINE HCL [Concomitant]
     Active Substance: CETIRIZINE HYDROCHLORIDE
  13. LANTUS [Concomitant]
     Active Substance: INSULIN GLARGINE
     Dosage: 100/ML VIAL
  14. ALBUTEROL SULFATE [Concomitant]
     Active Substance: ALBUTEROL SULFATE
     Dosage: HYDROFLUOROALKANE AEROSOL WITH ADAPTER.
  15. CARVEDILOL [Concomitant]
     Active Substance: CARVEDILOL
  16. NITROGLYCERIN [Concomitant]
     Active Substance: NITROGLYCERIN
  17. LOPERAMIDE [Concomitant]
     Active Substance: LOPERAMIDE
  18. QVAR REDIHALER [Concomitant]
     Active Substance: BECLOMETHASONE DIPROPIONATE
     Dosage: HYDROFLUOROALKANE, AEROSOL BREATH ACTIVATED.
  19. ASCORBIC ACID\BIOTIN\CALCIUM PANTOTHENATE\CYANOCOBALAMIN\FOLIC ACID\NI [Concomitant]
     Active Substance: ASCORBIC ACID\BIOTIN\CALCIUM PANTOTHENATE\CYANOCOBALAMIN\FOLIC ACID\NIACINAMIDE\PYRIDOXINE HYDROCHLO
     Dosage: 1MG-60MG
  20. ACETAMINOPHEN\HYDROCODONE [Concomitant]
     Active Substance: ACETAMINOPHEN\HYDROCODONE
  21. GABAPENTIN [Concomitant]
     Active Substance: GABAPENTIN
  22. BANOPHEN [Concomitant]
     Active Substance: DIPHENHYDRAMINE HYDROCHLORIDE

REACTIONS (2)
  - Eye pain [Unknown]
  - Vision blurred [Unknown]

NARRATIVE: CASE EVENT DATE: 20230818
